FAERS Safety Report 4314306-8 (Version None)
Quarter: 2004Q1

REPORT INFORMATION
  Report Type: 
  Country: None (occurrence: None)
  Receive Date: 20040309
  Receipt Date: 20020904
  Transmission Date: 20041129
  Serious: Yes (Hospitalization, Disabling)
  Sender: FDA-Public Use
  Company Number: WAES 0209USA00432

PATIENT
  Age: 43 Year
  Sex: Female
  Weight: 68 kg

DRUGS (10)
  1. FLEXERIL [Concomitant]
     Route: 048
  2. COLACE [Concomitant]
  3. MAXZIDE [Concomitant]
  4. PAXIL [Concomitant]
     Dates: start: 19960101
  5. POTASSIUM CHLORIDE [Concomitant]
  6. VIOXX [Suspect]
     Route: 048
     Dates: start: 20010201, end: 20010101
  7. VIOXX [Suspect]
     Route: 048
     Dates: start: 20010101, end: 20010101
  8. VIOXX [Suspect]
     Route: 048
     Dates: start: 20010101
  9. TRAZODONE HYDROCHLORIDE [Concomitant]
  10. COUMADIN [Concomitant]

REACTIONS (52)
  - ABDOMINAL DISTENSION [None]
  - ABDOMINAL PAIN LOWER [None]
  - ADNEXA UTERI MASS [None]
  - ANGINA UNSTABLE [None]
  - ANXIETY [None]
  - ARTHRALGIA [None]
  - ARTHRITIS [None]
  - BACK PAIN [None]
  - BALANCE DISORDER [None]
  - CARDIAC STRESS TEST ABNORMAL [None]
  - CAROTID ARTERY STENOSIS [None]
  - CAROTID BRUIT [None]
  - CEREBROVASCULAR ACCIDENT [None]
  - CHEST DISCOMFORT [None]
  - CHILLS [None]
  - CONSTIPATION [None]
  - CYSTOCELE [None]
  - DIABETES MELLITUS [None]
  - DYSARTHRIA [None]
  - EAR PAIN [None]
  - ELECTROCARDIOGRAM ST-T CHANGE [None]
  - ENTEROCELE [None]
  - FACIAL PALSY [None]
  - FIBROMYALGIA [None]
  - FLATULENCE [None]
  - GANGLION [None]
  - HAEMATOCHEZIA [None]
  - HAEMORRHAGIC OVARIAN CYST [None]
  - HEADACHE [None]
  - HEARING IMPAIRED [None]
  - HEMIPARESIS [None]
  - HYPERLIPIDAEMIA [None]
  - HYPERTENSION [None]
  - HYPOAESTHESIA [None]
  - HYPOKALAEMIA [None]
  - HYPOTENSION [None]
  - LIPOSARCOMA [None]
  - MAJOR DEPRESSION [None]
  - MEMORY IMPAIRMENT [None]
  - MUSCULOSKELETAL STIFFNESS [None]
  - NECK PAIN [None]
  - OEDEMA PERIPHERAL [None]
  - OVARIAN CYST [None]
  - PARAESTHESIA [None]
  - PHLEBITIS SUPERFICIAL [None]
  - RECTOCELE [None]
  - RENAL CYST [None]
  - SINUS PAIN [None]
  - SLEEP DISORDER [None]
  - STRESS INCONTINENCE [None]
  - THROMBOPHLEBITIS SUPERFICIAL [None]
  - UTERINE PROLAPSE [None]
